FAERS Safety Report 16004954 (Version 1)
Quarter: 2019Q1

REPORT INFORMATION
  Report Type: Spontaneous
  Country: US (occurrence: US)
  Receive Date: 20190226
  Receipt Date: 20190226
  Transmission Date: 20190418
  Serious: Yes (Hospitalization, Other)
  Sender: FDA-Public Use
  Company Number: PHEH2019US008416

PATIENT
  Sex: Male

DRUGS (1)
  1. TASIGNA [Suspect]
     Active Substance: NILOTINIB
     Indication: CHRONIC MYELOID LEUKAEMIA
     Dosage: 2 DF, BID
     Route: 048
     Dates: start: 20120611

REACTIONS (27)
  - Oedema peripheral [Unknown]
  - Deep vein thrombosis [Unknown]
  - Hyperbilirubinaemia [Unknown]
  - Inflammation [Unknown]
  - Conjunctivitis [Unknown]
  - Ischaemic cardiomyopathy [Unknown]
  - Bone pain [Unknown]
  - Heparin-induced thrombocytopenia [Unknown]
  - Chest pain [Unknown]
  - Fatigue [Unknown]
  - Weight decreased [Unknown]
  - Fungal infection [Unknown]
  - Atrial fibrillation [Unknown]
  - Myalgia [Unknown]
  - Arthralgia [Unknown]
  - Depression [Unknown]
  - Iron deficiency anaemia [Unknown]
  - Pulmonary embolism [Unknown]
  - Dyspnoea [Unknown]
  - Renal failure [Unknown]
  - Anxiety [Unknown]
  - Neuropathy peripheral [Unknown]
  - Peripheral venous disease [Unknown]
  - Post thrombotic syndrome [Unknown]
  - Pulmonary mass [Unknown]
  - Splenomegaly [Unknown]
  - Diarrhoea [Unknown]
